FAERS Safety Report 19181034 (Version 2)
Quarter: 2021Q2

REPORT INFORMATION
  Report Type: Spontaneous
  Country: US (occurrence: US)
  Receive Date: 20210426
  Receipt Date: 20210527
  Transmission Date: 20210717
  Serious: No
  Sender: FDA-Public Use
  Company Number: US-MYLANLABS-2021M1021678

PATIENT
  Sex: Female
  Weight: 60 kg

DRUGS (1)
  1. DICLOFENAC [Suspect]
     Active Substance: DICLOFENAC
     Indication: ARTHRITIS
     Dosage: 100 MILLIGRAM, QD (ONE TABLET A DAY)
     Dates: end: 201304

REACTIONS (2)
  - Abdominal discomfort [Unknown]
  - Vomiting [Unknown]
